FAERS Safety Report 11434495 (Version 2)
Quarter: 2016Q3

REPORT INFORMATION
  Report Type: Spontaneous
  Country: US (occurrence: US)
  Receive Date: 20150831
  Receipt Date: 20160803
  Transmission Date: 20161109
  Serious: No
  Sender: FDA-Public Use
  Company Number: US-BAYER-2015-403692

PATIENT
  Sex: Female
  Weight: 61.22 kg

DRUGS (1)
  1. AVELOX [Suspect]
     Active Substance: MOXIFLOXACIN HYDROCHLORIDE
     Dosage: 400 MG, UNK
     Dates: start: 201305

REACTIONS (10)
  - Anxiety [None]
  - Emotional distress [None]
  - Pain [None]
  - Muscular weakness [None]
  - Paraesthesia [None]
  - Burning sensation [None]
  - Injury [None]
  - Neuropathy peripheral [None]
  - Pain in extremity [None]
  - Hypoaesthesia [None]
